FAERS Safety Report 13457059 (Version 1)
Quarter: 2017Q2

REPORT INFORMATION
  Report Type: Spontaneous
  Country: US (occurrence: US)
  Receive Date: 20170419
  Receipt Date: 20170419
  Transmission Date: 20170830
  Serious: Yes (Death, Hospitalization)
  Sender: FDA-Public Use
  Company Number: US-BIOMARINAP-US-2017-112992

PATIENT
  Sex: Female

DRUGS (1)
  1. NAGLAZYME [Suspect]
     Active Substance: GALSULFASE
     Indication: MUCOPOLYSACCHARIDOSIS VI
     Dosage: 40 MG, QW
     Route: 042
     Dates: start: 20080625

REACTIONS (6)
  - Endotracheal intubation complication [Unknown]
  - Pulmonary embolism [Fatal]
  - Condition aggravated [Unknown]
  - Mechanical ventilation [Unknown]
  - Extracorporeal membrane oxygenation [Unknown]
  - Pulmonary oedema [Unknown]
